FAERS Safety Report 7752314-5 (Version None)
Quarter: 2011Q3

REPORT INFORMATION
  Report Type: 
  Country: None (occurrence: None)
  Receive Date: 20110915
  Receipt Date: 20110914
  Transmission Date: 20111222
  Serious: Yes (Hospitalization)
  Sender: FDA-Public Use
  Company Number: JP-ABBOTT-10P-087-0649119-00

PATIENT
  Sex: Male
  Weight: 54 kg

DRUGS (17)
  1. PREDNISOLONE [Suspect]
     Indication: RHEUMATOID ARTHRITIS
     Route: 048
     Dates: start: 20090718, end: 20091128
  2. ISONIAZID [Concomitant]
     Indication: ANTIBIOTIC PROPHYLAXIS
     Route: 048
     Dates: start: 20090718, end: 20100109
  3. FOLIC ACID [Concomitant]
     Indication: ADVERSE DRUG REACTION
  4. LOXOPROFEN SODIUM HYDRATE [Concomitant]
     Indication: RHEUMATOID ARTHRITIS
     Route: 048
     Dates: start: 20090718
  5. HUMIRA [Suspect]
     Indication: RHEUMATOID ARTHRITIS
     Route: 058
     Dates: start: 20091017, end: 20100615
  6. PREDNISOLONE [Suspect]
     Route: 048
     Dates: start: 20091219, end: 20110426
  7. SULFAMETHOXAZOLE AND TRIMETHOPRIM [Concomitant]
     Indication: PNEUMONIA
  8. REBAMIPIDE [Concomitant]
     Indication: GASTRITIS PROPHYLAXIS
     Route: 048
     Dates: start: 20090718
  9. VITAMIN B COMPLEX CAP [Concomitant]
     Indication: PROPHYLAXIS
     Route: 048
     Dates: start: 20090718
  10. ALFACALCIDOL [Concomitant]
     Indication: OSTEOPOROSIS
     Route: 048
     Dates: start: 20090613
  11. PREDNISOLONE [Suspect]
     Dates: start: 20110427
  12. VITAMIN B COMPLEX CAP [Concomitant]
     Indication: ADVERSE DRUG REACTION
  13. SULFAMETHOXAZOLE AND TRIMETHOPRIM [Concomitant]
     Indication: PROPHYLAXIS
     Route: 048
     Dates: start: 20090718
  14. ALENDRONATE SODIUM [Concomitant]
     Indication: OSTEOPOROSIS
     Route: 048
     Dates: start: 20090718
  15. LANSOPRAZOLE [Concomitant]
     Indication: GASTRITIS PROPHYLAXIS
     Route: 048
     Dates: start: 20090718
  16. METHOTREXATE [Suspect]
     Indication: RHEUMATOID ARTHRITIS
     Dosage: 12 MG WEEKLY
     Route: 048
     Dates: start: 20090808
  17. FOLIC ACID [Concomitant]
     Indication: PROPHYLAXIS
     Route: 048
     Dates: start: 20090718

REACTIONS (6)
  - TUBERCULOSIS [None]
  - JOINT STIFFNESS [None]
  - ARTHRALGIA [None]
  - PLEURAL FIBROSIS [None]
  - CHEST X-RAY ABNORMAL [None]
  - BACK PAIN [None]
